FAERS Safety Report 4773778-5 (Version None)
Quarter: 2005Q3

REPORT INFORMATION
  Report Type: 
  Country: None (occurrence: None)
  Receive Date: 20050919
  Receipt Date: 20050902
  Transmission Date: 20060218
  Serious: Yes (Death)
  Sender: FDA-Public Use
  Company Number: 12244

PATIENT
  Age: 84 Year
  Sex: Female

DRUGS (7)
  1. METHOTREXATE [Suspect]
     Dosage: 10 MG WEEKLY PO
     Route: 048
  2. ASPIRIN [Concomitant]
  3. CELECOXIB [Concomitant]
  4. LANSOPRAZOLE [Concomitant]
  5. DIGOXIN [Concomitant]
  6. CEPHRADINE [Concomitant]
  7. AMOXICILLIN [Concomitant]

REACTIONS (4)
  - MELAENA [None]
  - MUCOSAL INFLAMMATION [None]
  - PANCYTOPENIA [None]
  - SEPSIS [None]
